FAERS Safety Report 7332413 (Version 8)
Quarter: 2013Q1

REPORT INFORMATION
  Report Type: Report from Study
  Country: JP (occurrence: JP)
  Receive Date: 20100325
  Receipt Date: 20130222
  Transmission Date: 20140127
  Serious: Yes (Death, Hospitalization, Other)
  Sender: FDA-Public Use
  Company Number: JP-ABBOTT-10P-087-0625142-00

PATIENT
  Age: 61 None
  Sex: Male
  Weight: 57 kg

DRUGS (9)
  1. HUMIRA [Suspect]
     Indication: RHEUMATOID ARTHRITIS
     Route: 058
     Dates: start: 20100106, end: 20100120
  2. PREDNISOLONE [Suspect]
     Indication: RHEUMATOID ARTHRITIS
     Route: 048
     Dates: start: 20090305, end: 20100208
  3. METHOTREXATE [Suspect]
     Indication: RHEUMATOID ARTHRITIS
     Route: 048
     Dates: start: 20090610, end: 20100205
  4. FOLIC ACID [Concomitant]
     Indication: PROPHYLAXIS
     Route: 048
     Dates: start: 20090305
  5. FOLIC ACID [Concomitant]
     Indication: FOLATE DEFICIENCY
  6. AMPIROXICAM [Concomitant]
     Indication: RHEUMATOID ARTHRITIS
     Route: 048
     Dates: start: 20090305
  7. TEPRENONE [Concomitant]
     Indication: PROPHYLAXIS
     Route: 048
     Dates: start: 20090305
  8. ALENDRONATE SODIUM [Concomitant]
     Indication: OSTEOPOROSIS PROPHYLAXIS
     Route: 048
     Dates: start: 20090305
  9. ALFACALCIDOL [Concomitant]
     Indication: OSTEOPOROSIS PROPHYLAXIS
     Route: 048
     Dates: start: 20090305

REACTIONS (11)
  - Pneumonia legionella [Fatal]
  - Septic shock [Unknown]
  - Hypotension [Unknown]
  - Blood bilirubin increased [Unknown]
  - Haemoglobin decreased [Unknown]
  - Renal disorder [Unknown]
  - Sick sinus syndrome [Unknown]
  - Rash [Unknown]
  - Cardio-respiratory arrest [Fatal]
  - Pneumothorax [Fatal]
  - Hyperkalaemia [Unknown]
